FAERS Safety Report 14594475 (Version 1)
Quarter: 2018Q1

REPORT INFORMATION
  Report Type: Spontaneous
  Country: CA (occurrence: CA)
  Receive Date: 20180302
  Receipt Date: 20180302
  Transmission Date: 20180509
  Serious: Yes (Death)
  Sender: FDA-Public Use
  Company Number: CA-TEVA-2018-CA-863776

PATIENT
  Age: 23 Year
  Sex: Female
  Weight: 71 kg

DRUGS (8)
  1. GABAPENTIN. [Suspect]
     Active Substance: GABAPENTIN
     Route: 065
  2. DEPO-PROVERA STERILE AQUEOUS SUSPENSION [Concomitant]
     Dosage: SUSPENSION INTRAMUSCULAR
  3. CODEINE [Suspect]
     Active Substance: CODEINE
     Route: 065
  4. ALCOHOL. [Suspect]
     Active Substance: ALCOHOL
     Route: 065
  5. ZOPICLONE [Concomitant]
     Active Substance: ZOPICLONE
  6. ALPRAZOLAM. [Suspect]
     Active Substance: ALPRAZOLAM
     Route: 065
  7. BROMAZEPAM [Suspect]
     Active Substance: BROMAZEPAM
     Route: 065
  8. TYLENOL WITH CODEINE [Concomitant]
     Active Substance: ACETAMINOPHEN\CODEINE PHOSPHATE

REACTIONS (2)
  - Toxicity to various agents [Fatal]
  - Postmortem blood drug level abnormal [Fatal]
